FAERS Safety Report 15923392 (Version 5)
Quarter: 2020Q4

REPORT INFORMATION
  Report Type: Report from Study
  Country: None (occurrence: JP)
  Receive Date: 20190206
  Receipt Date: 20201006
  Transmission Date: 20210113
  Serious: Yes (Death, Other)
  Sender: FDA-Public Use
  Company Number: JP-CLINIGEN GROUP PLC/ CLINIGEN HEALTHCARE LTD-JP-CLGN-19-00052

PATIENT
  Age: 1 Year
  Sex: Female
  Weight: 7.3 kg

DRUGS (47)
  1. METHOTREXATE. [Concomitant]
     Active Substance: METHOTREXATE
     Indication: PRODUCT USED FOR UNKNOWN INDICATION
     Route: 024
     Dates: start: 20161215, end: 20161215
  2. GRANISETRON [Concomitant]
     Active Substance: GRANISETRON
     Route: 042
     Dates: start: 20170203, end: 20170205
  3. PN TWIN [Concomitant]
     Indication: PRODUCT USED FOR UNKNOWN INDICATION
     Route: 041
     Dates: start: 20161102, end: 20161117
  4. SAVENE [Suspect]
     Active Substance: DEXRAZOXANE
     Route: 041
     Dates: start: 20170202, end: 20170203
  5. CYLOCIDE [Concomitant]
     Active Substance: CYTARABINE
     Route: 024
     Dates: start: 20170202, end: 20170202
  6. ENDOXAN [Concomitant]
     Active Substance: CYCLOPHOSPHAMIDE
     Indication: PRODUCT USED FOR UNKNOWN INDICATION
     Dates: start: 20161215, end: 20161217
  7. ENDOXAN [Concomitant]
     Active Substance: CYCLOPHOSPHAMIDE
     Dates: start: 20161028, end: 20161030
  8. ENDOXAN [Concomitant]
     Active Substance: CYCLOPHOSPHAMIDE
     Dates: start: 20170202, end: 20170204
  9. LEUCOVORIN. [Concomitant]
     Active Substance: LEUCOVORIN
     Dates: start: 20161029, end: 20161029
  10. GRAN [Concomitant]
     Active Substance: FILGRASTIM
     Dates: start: 20161031, end: 20161108
  11. DOXORUBICIN HYDROCHLORIDE. [Concomitant]
     Active Substance: DOXORUBICIN HYDROCHLORIDE
     Dates: start: 20161028, end: 20161029
  12. DOXORUBICIN HYDROCHLORIDE. [Concomitant]
     Active Substance: DOXORUBICIN HYDROCHLORIDE
     Dates: start: 20170202, end: 20170203
  13. SEISHOKU [Concomitant]
     Active Substance: SODIUM CHLORIDE
     Indication: MEDICATION DILUTION
     Route: 041
     Dates: start: 20161215, end: 20161216
  14. HYDROCORTONE [Concomitant]
     Active Substance: HYDROCORTISONE
     Indication: PRODUCT USED FOR UNKNOWN INDICATION
     Route: 042
  15. ALOXI [Concomitant]
     Active Substance: PALONOSETRON HYDROCHLORIDE
     Route: 042
     Dates: start: 20170202, end: 20170202
  16. SOLDEM 3AG [Concomitant]
     Route: 041
     Dates: start: 20170105, end: 20170111
  17. E KEPPRA [Concomitant]
     Active Substance: LEVETIRACETAM
     Indication: PRODUCT USED FOR UNKNOWN INDICATION
     Route: 048
  18. ONCOVIN [Concomitant]
     Active Substance: VINCRISTINE SULFATE
     Route: 042
     Dates: start: 20161028, end: 20161028
  19. PROEMEND [Concomitant]
     Active Substance: FOSAPREPITANT
     Route: 041
     Dates: start: 20170202, end: 20170202
  20. GRANISETRON [Concomitant]
     Active Substance: GRANISETRON
     Route: 042
     Dates: start: 20161029, end: 20161030
  21. LEUCOVORIN. [Concomitant]
     Active Substance: LEUCOVORIN
     Dates: start: 20170203, end: 20170203
  22. ELENTAL [Concomitant]
     Active Substance: AMINO ACIDS\CARBOHYDRATES\MINERALS\SOYBEAN OIL\VITAMINS
     Indication: PRODUCT USED FOR UNKNOWN INDICATION
     Route: 048
  23. SAVENE [Suspect]
     Active Substance: DEXRAZOXANE
     Indication: CHEMOTHERAPY CARDIOTOXICITY ATTENUATION
     Route: 041
     Dates: start: 20161028, end: 20161029
  24. DOXORUBICIN HYDROCHLORIDE. [Concomitant]
     Active Substance: DOXORUBICIN HYDROCHLORIDE
     Indication: PRODUCT USED FOR UNKNOWN INDICATION
     Dates: start: 20161215, end: 20161216
  25. METHOTREXATE. [Concomitant]
     Active Substance: METHOTREXATE
     Route: 024
     Dates: start: 20170202, end: 20170202
  26. CYLOCIDE [Concomitant]
     Active Substance: CYTARABINE
     Indication: PRODUCT USED FOR UNKNOWN INDICATION
     Route: 024
     Dates: start: 20161215, end: 20161215
  27. ONCOVIN [Concomitant]
     Active Substance: VINCRISTINE SULFATE
     Indication: PRODUCT USED FOR UNKNOWN INDICATION
     Route: 042
     Dates: start: 20161215, end: 20161215
  28. PROEMEND [Concomitant]
     Active Substance: FOSAPREPITANT
     Indication: PRODUCT USED FOR UNKNOWN INDICATION
     Route: 041
     Dates: start: 20161215, end: 20161215
  29. GRAN [Concomitant]
     Active Substance: FILGRASTIM
     Indication: PRODUCT USED FOR UNKNOWN INDICATION
     Dates: start: 20161218, end: 20161218
  30. SOLDEM 2 [Concomitant]
     Indication: PRODUCT USED FOR UNKNOWN INDICATION
     Route: 041
     Dates: start: 20161215, end: 20161218
  31. ONCOVIN [Concomitant]
     Active Substance: VINCRISTINE SULFATE
     Route: 042
     Dates: start: 20170202, end: 20170202
  32. GRANISETRON [Concomitant]
     Active Substance: GRANISETRON
     Indication: PRODUCT USED FOR UNKNOWN INDICATION
     Route: 042
     Dates: start: 20161216, end: 20161217
  33. LEUCOVORIN. [Concomitant]
     Active Substance: LEUCOVORIN
     Indication: PRODUCT USED FOR UNKNOWN INDICATION
     Dates: start: 20161216, end: 20161216
  34. SAVENE [Suspect]
     Active Substance: DEXRAZOXANE
     Route: 041
     Dates: start: 20161215, end: 20161216
  35. SEISHOKU [Concomitant]
     Active Substance: SODIUM CHLORIDE
     Route: 041
     Dates: start: 20161028, end: 20161029
  36. METHOTREXATE. [Concomitant]
     Active Substance: METHOTREXATE
     Route: 024
     Dates: start: 20161028, end: 20161028
  37. ALOXI [Concomitant]
     Active Substance: PALONOSETRON HYDROCHLORIDE
     Route: 042
     Dates: start: 20161028
  38. UROMITEXAN [Concomitant]
     Active Substance: MESNA
     Indication: PRODUCT USED FOR UNKNOWN INDICATION
     Route: 042
     Dates: start: 20161215, end: 20161217
  39. UROMITEXAN [Concomitant]
     Active Substance: MESNA
     Route: 042
     Dates: start: 20161028, end: 20161030
  40. UROMITEXAN [Concomitant]
     Active Substance: MESNA
     Route: 042
     Dates: start: 20170202, end: 20170204
  41. VENOGLOBULIN IH [Concomitant]
     Active Substance: HUMAN IMMUNOGLOBULIN G
     Indication: HYPOGAMMAGLOBULINAEMIA
     Route: 042
     Dates: start: 20161221, end: 20161221
  42. E KEPPRA [Concomitant]
     Active Substance: LEVETIRACETAM
     Route: 048
  43. CYLOCIDE [Concomitant]
     Active Substance: CYTARABINE
     Route: 024
     Dates: start: 20161028, end: 20161028
  44. PROEMEND [Concomitant]
     Active Substance: FOSAPREPITANT
     Route: 041
     Dates: start: 20161028
  45. ALOXI [Concomitant]
     Active Substance: PALONOSETRON HYDROCHLORIDE
     Indication: PRODUCT USED FOR UNKNOWN INDICATION
     Route: 042
     Dates: start: 20161215, end: 20161215
  46. SOLDEM 3AG [Concomitant]
     Indication: HYPOPHAGIA
     Route: 041
     Dates: start: 20161218, end: 20161228
  47. NEUTROGIN [Concomitant]
     Active Substance: LENOGRASTIM
     Indication: PRODUCT USED FOR UNKNOWN INDICATION
     Dates: start: 20170206, end: 20170212

REACTIONS (3)
  - Atypical teratoid/rhabdoid tumour of CNS [Fatal]
  - Myelosuppression [Recovered/Resolved]
  - Off label use [Unknown]

NARRATIVE: CASE EVENT DATE: 20161104
